FAERS Safety Report 9457519 (Version 2)
Quarter: 2013Q3

REPORT INFORMATION
  Report Type: Spontaneous
  Country: US (occurrence: US)
  Receive Date: 20130814
  Receipt Date: 20130906
  Transmission Date: 20140515
  Serious: No
  Sender: FDA-Public Use
  Company Number: US-JNJFOC-20130800934

PATIENT
  Sex: Male
  Weight: 53.07 kg

DRUGS (12)
  1. DURAGESIC [Suspect]
     Indication: ARTHROPATHY
     Route: 062
     Dates: start: 2003
  2. DURAGESIC [Suspect]
     Indication: ARTHROPATHY
     Dosage: NDC 50458-094-05
     Route: 062
  3. DURAGESIC [Suspect]
     Indication: ARTHROPATHY
     Route: 062
  4. DURAGESIC [Suspect]
     Indication: ARTHROPATHY
     Route: 062
  5. DURAGESIC [Suspect]
     Indication: BREAST CANCER
     Route: 062
  6. DURAGESIC [Suspect]
     Indication: BREAST CANCER
     Route: 062
  7. DURAGESIC [Suspect]
     Indication: BREAST CANCER
     Dosage: NDC 50458-094-05
     Route: 062
  8. DURAGESIC [Suspect]
     Indication: BREAST CANCER
     Route: 062
     Dates: start: 2003
  9. DURAGESIC [Suspect]
     Indication: PRODUCT USED FOR UNKNOWN INDICATION
     Route: 062
  10. FENTANYL TRANSDERMAL SYSTEM [Suspect]
     Indication: PAIN
     Route: 062
  11. VITAMIN D [Concomitant]
     Route: 048
  12. BONIVA [Concomitant]
     Indication: BONE DISORDER
     Route: 048

REACTIONS (4)
  - Drug ineffective [Not Recovered/Not Resolved]
  - Drug dose omission [Not Recovered/Not Resolved]
  - Wrong technique in drug usage process [Recovered/Resolved]
  - Product quality issue [Unknown]
